FAERS Safety Report 19244332 (Version 3)
Quarter: 2021Q2

REPORT INFORMATION
  Report Type: Report from Study
  Country: None (occurrence: DE)
  Receive Date: 20210511
  Receipt Date: 20210608
  Transmission Date: 20210717
  Serious: Yes (Other)
  Sender: FDA-Public Use
  Company Number: DE-ABBVIE-21K-062-3896271-00

PATIENT
  Age: 67 Year
  Sex: Male
  Weight: 73 kg

DRUGS (26)
  1. EMTRICITABIN/TENOFOVIRDISOPROXIL ZENTIVA [Suspect]
     Active Substance: EMTRICITABINE\TENOFOVIR DISOPROXIL
     Indication: HIV INFECTION
     Dosage: UNIT DOSE: 1 UNKNOWN, 200/245MG
     Route: 048
     Dates: start: 20171117
  2. TOLPERISONE [Concomitant]
     Active Substance: TOLPERISONE
     Indication: PRODUCT USED FOR UNKNOWN INDICATION
     Dosage: BEFORE AND AFTER MAVIRET?THERAPY
     Dates: end: 20191104
  3. OXYCODON COMP [Concomitant]
     Indication: PRODUCT USED FOR UNKNOWN INDICATION
     Dosage: 4/20 MG
  4. OXYCODON COMP [Concomitant]
     Dosage: 10/5 MG
  5. OXYCODON COMP [Concomitant]
     Dosage: BEFORE AND AFTER MAVIRET?THERAPY
     Dates: start: 20180824
  6. PRAMIPEXOL [Concomitant]
     Active Substance: PRAMIPEXOLE
     Indication: PRODUCT USED FOR UNKNOWN INDICATION
     Dates: end: 20191104
  7. MIRTAZAPIN [Concomitant]
     Active Substance: MIRTAZAPINE
     Indication: PRODUCT USED FOR UNKNOWN INDICATION
     Dosage: BEFORE AND AFTER MAVIRET?THERAPY
     Dates: end: 20200603
  8. NICORETTE [Concomitant]
     Active Substance: NICOTINE
     Indication: PRODUCT USED FOR UNKNOWN INDICATION
     Dates: start: 20180904
  9. AMLODIPIN 1 A PHARMA [Concomitant]
     Active Substance: AMLODIPINE BESYLATE
     Indication: CARDIOVASCULAR DISORDER
     Dosage: BEFORE MAVIRET?THERAPY
     Dates: end: 20200603
  10. BACLOFEN DURA [Concomitant]
     Active Substance: BACLOFEN
     Dosage: 0.5?0.5?0.5?0
     Dates: start: 20191104
  11. PREGABALIN 1A PHARMA [Concomitant]
     Active Substance: PREGABALIN
     Indication: PRODUCT USED FOR UNKNOWN INDICATION
     Dates: end: 20200603
  12. MAVIRET [Suspect]
     Active Substance: GLECAPREVIR\PIBRENTASVIR
     Indication: CHRONIC HEPATITIS C
     Dosage: 100 MG GLECAPREVIR/40 MG PIBRENTASVIR TABLETS, 3 TABLETS ONCE DAILY
     Route: 048
     Dates: start: 20180809, end: 20181003
  13. ISENTRESS [Suspect]
     Active Substance: RALTEGRAVIR POTASSIUM
     Indication: HIV INFECTION
     Route: 048
     Dates: start: 20171117
  14. BACLOFEN DURA [Concomitant]
     Active Substance: BACLOFEN
     Indication: PRODUCT USED FOR UNKNOWN INDICATION
     Dates: end: 20191104
  15. PRAMIPEXOL [Concomitant]
     Active Substance: PRAMIPEXOLE
     Dosage: 0.5?0.5?1?0
     Dates: start: 20191104, end: 20201123
  16. TOLPERISONE [Concomitant]
     Active Substance: TOLPERISONE
     Dates: start: 20191104
  17. ZOPICLON [Concomitant]
     Active Substance: ZOPICLONE
     Indication: PRODUCT USED FOR UNKNOWN INDICATION
     Dosage: BEFORE  AND AFTER MAVIRET?THERAPY
  18. METOPROLOLSUCCINAT AAA [Concomitant]
     Indication: CARDIOVASCULAR DISORDER
     Dosage: BEFORE MAVIRET?THERAPY
     Dates: end: 20200603
  19. FORMOTEROL AL [Concomitant]
     Indication: PRODUCT USED FOR UNKNOWN INDICATION
     Dosage: BEFORE AND AFTER MAVIRET?THERAPY
  20. MCP [Concomitant]
     Active Substance: METOCLOPRAMIDE HYDROCHLORIDE
     Indication: ADVERSE DRUG REACTION
     Dosage: AS REQUIRED
     Dates: start: 20180924
  21. GABAPENTIN CT [Concomitant]
     Indication: PRODUCT USED FOR UNKNOWN INDICATION
     Dates: end: 20200603
  22. BIFITERAL [Concomitant]
     Active Substance: LACTULOSE
     Indication: PRODUCT USED FOR UNKNOWN INDICATION
     Dosage: BEFORE AND AFTER MAVIRET?THERAPY
  23. OMEPRAZOL ABZ [Concomitant]
     Active Substance: OMEPRAZOLE
     Indication: PRODUCT USED FOR UNKNOWN INDICATION
     Dosage: DURING MAVIRET?THERAPY
  24. RAMIPRIL. [Concomitant]
     Active Substance: RAMIPRIL
     Indication: CARDIOVASCULAR DISORDER
     Dosage: BEFORE MAVIRET?THERAPY
     Dates: end: 20200603
  25. BERODUAL N [Concomitant]
     Active Substance: FENOTEROL HYDROBROMIDE\IPRATROPIUM BROMIDE
     Indication: PRODUCT USED FOR UNKNOWN INDICATION
     Dosage: BEFORE AND AFTER MAVIRET?THERAPY?AS REQUIRED
  26. IBUPROFEN (NSAID) PAIN RELIEVER/FEVER REDUCER [Concomitant]
     Active Substance: IBUPROFEN
     Indication: PRODUCT USED FOR UNKNOWN INDICATION
     Dosage: BEFORE AND AFTER  MAVIRET?THERAPY?AS REQUIRED

REACTIONS (47)
  - Red cell distribution width increased [Unknown]
  - CD4 lymphocytes decreased [Unknown]
  - Carotid artery stenosis [Unknown]
  - High density lipoprotein decreased [Unknown]
  - Coronary artery embolism [Unknown]
  - Basophil percentage increased [Unknown]
  - Impaired gastric emptying [Unknown]
  - Sinusitis [Unknown]
  - Monoplegia [Unknown]
  - Infarction [Unknown]
  - Haemoglobin decreased [Unknown]
  - Mean cell volume decreased [Unknown]
  - Lung hyperinflation [Unknown]
  - Cerebral microangiopathy [Unknown]
  - Muscle twitching [Unknown]
  - Diverticulum [Unknown]
  - Carotid arteriosclerosis [Unknown]
  - Vertebral artery arteriosclerosis [Unknown]
  - Arteriosclerosis coronary artery [Unknown]
  - Metabolic encephalopathy [Unknown]
  - Asthenia [Unknown]
  - Cerebrovascular accident [Unknown]
  - Haematocrit decreased [Unknown]
  - Mean platelet volume increased [Unknown]
  - Abdominal pain upper [Unknown]
  - Degenerative bone disease [Unknown]
  - Tremor [Unknown]
  - Myoclonus [Unknown]
  - Ischaemia [Unknown]
  - CD8 lymphocytes increased [Unknown]
  - Mean cell haemoglobin decreased [Unknown]
  - Hemiparesis [Unknown]
  - Faecaloma [Recovering/Resolving]
  - Aortic arteriosclerosis [Unknown]
  - Mean cell haemoglobin concentration decreased [Unknown]
  - Blood count abnormal [Unknown]
  - Motor dysfunction [Unknown]
  - Nervous system disorder [Unknown]
  - Central nervous system lesion [Unknown]
  - Hypercapnia [Unknown]
  - Cerebral haemorrhage [Unknown]
  - Dizziness [Unknown]
  - Paraesthesia [Unknown]
  - Granuloma [Unknown]
  - Hypoaesthesia [Unknown]
  - Blood triglycerides increased [Unknown]
  - Asterixis [Unknown]

NARRATIVE: CASE EVENT DATE: 20210316
